FAERS Safety Report 8346109-1 (Version None)
Quarter: 2012Q2

REPORT INFORMATION
  Report Type: 
  Country: None (occurrence: None)
  Receive Date: 20120509
  Receipt Date: 20120427
  Transmission Date: 20120825
  Serious: Yes (Other)
  Sender: FDA-Public Use
  Company Number: CZ-JNJFOC-20120401108

PATIENT
  Sex: Male
  Weight: 36.2 kg

DRUGS (3)
  1. FOLIC ACID [Concomitant]
     Route: 065
     Dates: end: 20120116
  2. REMICADE [Suspect]
     Indication: CROHN'S DISEASE
     Dosage: TOTAL 8 INFUSIONS
     Route: 042
     Dates: start: 20110303, end: 20120312
  3. PENTASA [Concomitant]
     Route: 065
     Dates: end: 20120116

REACTIONS (1)
  - PANCREATITIS ACUTE [None]
